FAERS Safety Report 10230583 (Version 1)
Quarter: 2014Q2

REPORT INFORMATION
  Report Type: Spontaneous
  Country: US (occurrence: US)
  Receive Date: 20140611
  Receipt Date: 20140611
  Transmission Date: 20141212
  Serious: No
  Sender: FDA-Public Use
  Company Number: US-INCYTE CORPORATION-2014IN001256

PATIENT
  Age: 72 Year
  Sex: Male

DRUGS (5)
  1. JAKAFI [Suspect]
     Indication: BLOOD DISORDER
     Dosage: 20 MG, BID
     Route: 048
     Dates: start: 2014
  2. WARFARIN [Concomitant]
  3. POTASSIUM [Concomitant]
  4. PROBENECID [Concomitant]
  5. ALLOPURINOL [Concomitant]

REACTIONS (2)
  - Pain in extremity [Not Recovered/Not Resolved]
  - Arthralgia [Not Recovered/Not Resolved]
